FAERS Safety Report 10360841 (Version 1)
Quarter: 2014Q3

REPORT INFORMATION
  Report Type: Spontaneous
  Country: FR (occurrence: None)
  Receive Date: 20140731
  Receipt Date: 20140731
  Transmission Date: 20150326
  Serious: Yes (Disabling)
  Sender: FDA-Public Use
  Company Number: 2455138

PATIENT
  Age: 10 Year
  Sex: Male
  Weight: 44 kg

DRUGS (15)
  1. EMEND [Suspect]
     Active Substance: APREPITANT
     Indication: PROPHYLAXIS OF NAUSEA AND VOMITING
     Dosage: 80 MG MILLIGRAM, 1 DAY, ORAL
     Route: 048
     Dates: start: 20140118, end: 20140120
  2. HOLOXAN [Concomitant]
     Active Substance: IFOSFAMIDE
  3. ZOPHREN/00955301 [Concomitant]
  4. VINCRISTINE SULFATE. [Suspect]
     Active Substance: VINCRISTINE SULFATE
     Indication: CHEMOTHERAPY
     Dosage: 2 MG MILLIGRAMS, UNKNOWN, INTRAVENOUS
     Route: 042
     Dates: start: 20140118, end: 20140228
  5. VANCOMYCINE [Concomitant]
     Active Substance: VANCOMYCIN
  6. DOXORUBICINE/00330901 [Concomitant]
  7. GENTAMICINE [Concomitant]
     Active Substance: GENTAMICIN
  8. FORLAX [Concomitant]
     Active Substance: POLYETHYLENE GLYCOL 4000
  9. PLITICAN [Concomitant]
     Active Substance: ALIZAPRIDE HYDROCHLORIDE
  10. VITAMIN K/00032401 [Concomitant]
  11. TAZOCILLINE [Concomitant]
     Active Substance: PIPERACILLIN SODIUM\TAZOBACTAM SODIUM
  12. UROMITEXAN [Concomitant]
     Active Substance: MESNA
  13. COSMEGEN [Concomitant]
     Active Substance: DACTINOMYCIN
  14. DEXAMETHASONE. [Concomitant]
     Active Substance: DEXAMETHASONE
  15. SPASFON/00765801 [Concomitant]

REACTIONS (10)
  - Cerebellar syndrome [None]
  - Motor dysfunction [None]
  - Escherichia pyelonephritis [None]
  - Drug interaction [None]
  - Mucosal inflammation [None]
  - Areflexia [None]
  - Neuropathy peripheral [None]
  - Pyelonephritis acute [None]
  - Febrile bone marrow aplasia [None]
  - Therapeutic response decreased [None]

NARRATIVE: CASE EVENT DATE: 20140118
